FAERS Safety Report 5282408-8 (Version None)
Quarter: 2007Q1

REPORT INFORMATION
  Report Type: 
  Country: None (occurrence: None)
  Receive Date: 20070326
  Receipt Date: 20070309
  Transmission Date: 20070707
  Serious: Yes (Life-Threatening)
  Sender: FDA-Public Use
  Company Number: 2005JP001690

PATIENT
  Age: 56 Year
  Sex: Female
  Weight: 59.1 kg

DRUGS (13)
  1. TACROLIMUS [Suspect]
     Indication: RHEUMATOID ARTHRITIS
     Dosage: SEE IMAGE
     Route: 048
     Dates: start: 20050520, end: 20050602
  2. TACROLIMUS [Suspect]
     Indication: RHEUMATOID ARTHRITIS
     Dosage: SEE IMAGE
     Route: 048
     Dates: start: 20050603, end: 20050616
  3. TACROLIMUS [Suspect]
     Indication: RHEUMATOID ARTHRITIS
     Dosage: SEE IMAGE
     Route: 048
     Dates: start: 20050617, end: 20050728
  4. ANPLAG(SARPROGRELATE HYDROCHLORIDE) TABLET [Suspect]
     Indication: ARTERIAL OCCLUSIVE DISEASE
     Dosage: 100.00 MG, TID, ORAL
     Route: 048
     Dates: start: 20031225
  5. ACTONEL [Suspect]
     Indication: OSTEOPOROSIS
     Dosage: 2.50 MG, QOD, ORAL
     Route: 048
     Dates: start: 20040528
  6. VOLTAREN - SLOW RELEASE CIBA-GEIGY CAPSULES [Concomitant]
  7. ACTOS TAKEDA (PIOGLITAZONE) TABLET [Concomitant]
  8. SELBEX (TEPRENONE) CAPSULE [Concomitant]
  9. PREDNISOLONE [Concomitant]
  10. PREDOHAN (PREDNISOLONE) TABLET [Concomitant]
  11. MEVALOTIN (PRAVASTATIN SODIUM) TABLET [Concomitant]
  12. FAMOGAST TABLET [Concomitant]
  13. LACTION (INDOMETACIN) [Concomitant]

REACTIONS (2)
  - STOMACH DISCOMFORT [None]
  - SUBARACHNOID HAEMORRHAGE [None]
